FAERS Safety Report 6680168-7 (Version None)
Quarter: 2010Q2

REPORT INFORMATION
  Report Type: 
  Country: None (occurrence: None)
  Receive Date: 20100413
  Receipt Date: 20100331
  Transmission Date: 20101027
  Serious: Yes (Death, Hospitalization)
  Sender: FDA-Public Use
  Company Number: ZA-ELI_LILLY_AND_COMPANY-ZA201004000054

PATIENT
  Age: 63 Year
  Sex: Female

DRUGS (3)
  1. ZYPREXA [Suspect]
     Indication: BIPOLAR I DISORDER
     Dosage: 5 MG, UNK
     Route: 048
     Dates: start: 20090901
  2. EPILIM CHRONO [Concomitant]
     Dosage: 500 MG, UNK
  3. AKINETON /00079501/ [Concomitant]
     Dosage: 2 MG, UNK

REACTIONS (1)
  - DIABETES MELLITUS [None]
